FAERS Safety Report 8511065-X (Version None)
Quarter: 2012Q3

REPORT INFORMATION
  Report Type: 
  Country: None (occurrence: None)
  Receive Date: 20120716
  Receipt Date: 20120710
  Transmission Date: 20120928
  Serious: Yes (Hospitalization)
  Sender: FDA-Public Use
  Company Number: US-BAYER-2011-038812

PATIENT
  Age: 30 Year
  Sex: Female
  Weight: 89.796 kg

DRUGS (9)
  1. IBUPROFEN [Concomitant]
     Dosage: 800MG
     Dates: start: 20050505
  2. VICODIN [Concomitant]
     Indication: PAIN
  3. YASMIN [Suspect]
     Dosage: UNK
     Dates: start: 20050501, end: 20050601
  4. AMOXICILLIN [Concomitant]
     Dosage: 500 MG
     Dates: start: 20050505
  5. CEPHALEXIN [Concomitant]
     Dosage: 500 MG
     Dates: start: 20050502
  6. OXYCODONE HCL AND ACETAMINOPHEN [Concomitant]
     Dosage: 5/325 TABLET
     Dates: start: 20050502
  7. BENADRYL [Concomitant]
     Indication: MUSCLE SPASMS
  8. ACETAMINOPHEN W/ CODEINE [Concomitant]
     Dosage: UNK
     Dates: start: 20050324
  9. HYDROQUINONE [Concomitant]
     Dosage: 4 %, UNK
     Dates: start: 20050406

REACTIONS (1)
  - DEEP VEIN THROMBOSIS [None]
